FAERS Safety Report 5752959-8 (Version None)
Quarter: 2008Q2

REPORT INFORMATION
  Report Type: 
  Country: None (occurrence: None)
  Receive Date: 20080527
  Receipt Date: 20080513
  Transmission Date: 20081010
  Serious: Yes (Hospitalization)
  Sender: FDA-Public Use
  Company Number: 028-21880-08041686

PATIENT
  Age: 83 Year
  Sex: Female

DRUGS (12)
  1. REVLIMID [Suspect]
     Indication: DRUG USE FOR UNKNOWN INDICATION
     Dosage: 5 MG ALTERNATING WITH 10 MG, DAILY, ORAL; 5-10 MG ALTERNATING, QD, ORAL
     Route: 048
     Dates: start: 20080221
  2. REVLIMID [Suspect]
  3. MIRAPEX [Concomitant]
  4. BACLOFEN [Concomitant]
  5. PANTOPRAZOLE SODIUM [Concomitant]
  6. SYNTHROID [Concomitant]
  7. CELEBREX [Concomitant]
  8. CALCITE (CALCIUM CARBONATE) [Concomitant]
  9. VITAMIN D [Concomitant]
  10. NEUPOGEN [Concomitant]
  11. MOTRIN [Concomitant]
  12. ACETAMINOPHEN [Concomitant]

REACTIONS (3)
  - BACK INJURY [None]
  - BACK PAIN [None]
  - SPINAL FRACTURE [None]
